APPROVED DRUG PRODUCT: FENOFIBRIC ACID
Active Ingredient: CHOLINE FENOFIBRATE
Strength: EQ 135MG FENOFIBRIC ACID
Dosage Form/Route: CAPSULE, DELAYED RELEASE;ORAL
Application: A200264 | Product #002 | TE Code: AB
Applicant: IMPAX LABORATORIES INC
Approved: Sep 7, 2016 | RLD: No | RS: No | Type: RX